FAERS Safety Report 5234445-7 (Version None)
Quarter: 2007Q1

REPORT INFORMATION
  Report Type: 
  Country: None (occurrence: None)
  Receive Date: 20070209
  Receipt Date: 20070205
  Transmission Date: 20070707
  Serious: Yes (Death, Life-Threatening)
  Sender: FDA-Public Use
  Company Number: FR-GLAXOSMITHKLINE-B0421970A

PATIENT
  Age: 83 Year
  Sex: Male
  Weight: 48 kg

DRUGS (8)
  1. ARIXTRA [Suspect]
     Indication: THROMBOSIS PROPHYLAXIS
     Dosage: 2.5MG PER DAY
     Route: 058
     Dates: start: 20060330, end: 20060406
  2. NON STEROIDAL ANTI-INFLAMMATORY [Suspect]
     Dates: start: 20060331, end: 20060401
  3. LASIX [Concomitant]
     Dates: start: 20060404
  4. FUMAFER [Concomitant]
     Dates: start: 20060403
  5. TOPALGIC (FRANCE) [Concomitant]
     Dates: start: 20060403, end: 20060406
  6. OMEPRAZOLE [Concomitant]
     Dates: start: 20060406
  7. MYOLASTAN [Concomitant]
     Dates: start: 20060403
  8. DAFALGAN [Concomitant]
     Dates: start: 20060403

REACTIONS (6)
  - ANAEMIA [None]
  - DUODENAL ULCER PERFORATION [None]
  - HYPOVOLAEMIA [None]
  - PERITONITIS [None]
  - RENAL FAILURE [None]
  - SEPSIS [None]
